FAERS Safety Report 8515624-X (Version None)
Quarter: 2012Q3

REPORT INFORMATION
  Report Type: 
  Country: None (occurrence: None)
  Receive Date: 20120717
  Receipt Date: 20120712
  Transmission Date: 20120928
  Serious: Yes (Death, Hospitalization)
  Sender: FDA-Public Use
  Company Number: PHHY2012BR060615

PATIENT
  Age: 77 Year
  Sex: Female

DRUGS (1)
  1. STALEVO 100 [Suspect]
     Indication: DEMENTIA ALZHEIMER'S TYPE
     Dosage: 2 DF, QD
     Route: 048

REACTIONS (5)
  - DEATH [None]
  - INFECTION [None]
  - VOMITING [None]
  - CONSTIPATION [None]
  - MALAISE [None]
